FAERS Safety Report 12461852 (Version 1)
Quarter: 2016Q2

REPORT INFORMATION
  Report Type: Spontaneous
  Country: US (occurrence: US)
  Receive Date: 20160613
  Receipt Date: 20160613
  Transmission Date: 20160815
  Serious: No
  Sender: FDA-Public Use
  Company Number: US-BAYER-2016-111601

PATIENT
  Age: 59 Year
  Sex: Female
  Weight: 58.96 kg

DRUGS (3)
  1. ALEVE [Suspect]
     Active Substance: NAPROXEN SODIUM
     Indication: PAIN IN EXTREMITY
     Route: 048
  2. ALEVE [Suspect]
     Active Substance: NAPROXEN SODIUM
     Indication: PAIN IN EXTREMITY
     Dosage: 1 DF, EVERY 12 HOURS
     Route: 048
  3. ALEVE PM [Suspect]
     Active Substance: DIPHENHYDRAMINE HYDROCHLORIDE\NAPROXEN SODIUM
     Indication: PAIN IN EXTREMITY
     Dosage: 1 DF, ONCE
     Route: 048
     Dates: start: 201605, end: 201605

REACTIONS (3)
  - Drug ineffective [None]
  - Peripheral swelling [Recovered/Resolved]
  - Product use issue [None]

NARRATIVE: CASE EVENT DATE: 201605
